FAERS Safety Report 5013957-5 (Version None)
Quarter: 2006Q2

REPORT INFORMATION
  Report Type: 
  Country: None (occurrence: None)
  Receive Date: 20060526
  Receipt Date: 20060526
  Transmission Date: 20061013
  Serious: Yes (Disabling, Other)
  Sender: FDA-Public Use
  Company Number: None

PATIENT
  Age: 38 Year
  Sex: Female
  Weight: 74.8435 kg

DRUGS (1)
  1. LYRICA [Suspect]
     Indication: PAIN
     Dosage: 200MG EVERY NIGHT AT BED  PO
     Route: 048
     Dates: start: 20060101, end: 20060524

REACTIONS (2)
  - DEPRESSION [None]
  - WEIGHT INCREASED [None]
